FAERS Safety Report 9353990 (Version 2)
Quarter: 2013Q2

REPORT INFORMATION
  Report Type: Spontaneous
  Country: GR (occurrence: GR)
  Receive Date: 20130618
  Receipt Date: 20130626
  Transmission Date: 20140414
  Serious: Yes (Other)
  Sender: FDA-Public Use
  Company Number: PHHY2013GR060158

PATIENT
  Age: 78 Year
  Sex: Female

DRUGS (11)
  1. CISPLATIN [Suspect]
     Indication: ADRENAL GLAND CANCER
     Dosage: 40 MG/M2
  2. OXALIPLATIN [Suspect]
     Dosage: 85 MG/M2, UNK
  3. HYDROCORTISONE [Concomitant]
     Indication: ADRENAL GLAND CANCER
     Dosage: 50 MG, PER DAY
  4. LEUCOVORIN [Concomitant]
     Indication: CHEMOTHERAPY
     Dosage: 200 MG/M2, UNK
  5. 5 FLUORO URACIL [Concomitant]
     Indication: CHEMOTHERAPY
     Dosage: 400 MG/M2, BOLUS
  6. 5 FLUORO URACIL [Concomitant]
     Dosage: 600 MG/M2
  7. ETOPOSIDE [Concomitant]
     Dosage: 100 MG/M2, UNK
  8. MITOTANE [Concomitant]
     Indication: ADRENAL GLAND CANCER
     Dosage: 2 G, DAY
     Route: 048
  9. MITOTANE [Concomitant]
     Dosage: 12 G, PER DAY
  10. ADRIAMYCIN [Concomitant]
     Indication: ADRENAL GLAND CANCER
     Dosage: 40 MG/M2, UNK
  11. PACLITAXEL [Concomitant]

REACTIONS (2)
  - Retinal detachment [Recovering/Resolving]
  - Deafness [Unknown]
